FAERS Safety Report 11634409 (Version 1)
Quarter: 2015Q4

REPORT INFORMATION
  Report Type: Report from Study
  Country: US (occurrence: US)
  Receive Date: 20151015
  Receipt Date: 20151015
  Transmission Date: 20160304
  Serious: Yes (Death, Hospitalization)
  Sender: FDA-Public Use
  Company Number: US-JNJFOC-20151005265

PATIENT
  Age: 68 Year
  Sex: Female

DRUGS (1)
  1. IMBRUVICA [Suspect]
     Active Substance: IBRUTINIB
     Indication: CHRONIC LYMPHOCYTIC LEUKAEMIA
     Route: 048
     Dates: start: 20150603

REACTIONS (8)
  - Acute kidney injury [Unknown]
  - Pulmonary mass [Unknown]
  - Respiratory failure [Unknown]
  - Atrial fibrillation [Unknown]
  - Thrombotic thrombocytopenic purpura [Unknown]
  - Septic shock [Fatal]
  - Cytomegalovirus test [Unknown]
  - Pneumonia [Fatal]

NARRATIVE: CASE EVENT DATE: 2015
